FAERS Safety Report 7577591-5 (Version None)
Quarter: 2011Q2

REPORT INFORMATION
  Report Type: 
  Country: None (occurrence: None)
  Receive Date: 20110628
  Receipt Date: 20101004
  Transmission Date: 20111010
  Serious: No
  Sender: FDA-Public Use
  Company Number: US-KINGPHARMUSA00001-K201001227

PATIENT
  Age: 35 Year
  Sex: Female
  Weight: 54.422 kg

DRUGS (1)
  1. BICILLIN L-A [Suspect]
     Indication: LYME DISEASE
     Dosage: 1.2 MILLION UNIT, BIW
     Route: 030
     Dates: start: 20100801

REACTIONS (1)
  - URINARY TRACT INFECTION [None]
